FAERS Safety Report 13392782 (Version 2)
Quarter: 2019Q4

REPORT INFORMATION
  Report Type: Spontaneous
  Country: CA (occurrence: CA)
  Receive Date: 20170331
  Receipt Date: 20191224
  Transmission Date: 20200122
  Serious: Yes (Life-Threatening, Other)
  Sender: FDA-Public Use
  Company Number: CA-TEVA-754474ACC

PATIENT
  Age: 14 Year
  Sex: Male
  Weight: 82 kg

DRUGS (6)
  1. CLONIDINE. [Suspect]
     Active Substance: CLONIDINE
     Indication: SOMATOTROPIN STIMULATION TEST
     Route: 048
  2. L-ARGININE [Suspect]
     Active Substance: ARGININE
     Indication: SOMATOTROPIN STIMULATION TEST
     Route: 042
  3. TERBUTALINE [Concomitant]
     Active Substance: TERBUTALINE
  4. L-ARGININE [Suspect]
     Active Substance: ARGININE
     Route: 042
  5. SYMBICORT 100 TURBUHALER [Concomitant]
  6. CHLORHEXIDINE [Suspect]
     Active Substance: CHLORHEXIDINE
     Indication: INFECTION PROPHYLAXIS
     Route: 061

REACTIONS (6)
  - Erythema [Recovered/Resolved]
  - Wheezing [Recovered/Resolved]
  - Oral pruritus [Recovered/Resolved]
  - Dyspnoea [Recovered/Resolved]
  - Sneezing [Recovered/Resolved]
  - Anaphylactic reaction [Recovered/Resolved]
